FAERS Safety Report 4328051-6 (Version None)
Quarter: 2004Q1

REPORT INFORMATION
  Report Type: 
  Country: None (occurrence: None)
  Receive Date: 20040325
  Receipt Date: 20040310
  Transmission Date: 20041129
  Serious: Yes (Hospitalization)
  Sender: FDA-Public Use
  Company Number: 186983

PATIENT
  Age: 45 Year
  Sex: Female

DRUGS (6)
  1. AVONEX [Suspect]
     Indication: MULTIPLE SCLEROSIS
     Dosage: 30 MCG QW IM
     Route: 030
     Dates: start: 19990101, end: 20030901
  2. AVONEX [Suspect]
     Indication: MULTIPLE SCLEROSIS
     Dosage: 30 MCG QW IM
     Route: 030
     Dates: start: 20030901, end: 20031101
  3. AVONEX [Suspect]
     Indication: MULTIPLE SCLEROSIS
     Dosage: 7.5 MCG QW IM
     Route: 030
     Dates: start: 20031101, end: 20031101
  4. AVONEX [Suspect]
     Indication: MULTIPLE SCLEROSIS
     Dosage: 15 MCG QW IM
     Route: 030
     Dates: start: 20031201, end: 20031201
  5. AVONEX [Suspect]
     Indication: MULTIPLE SCLEROSIS
     Dosage: 22.5 MCG QW IM
     Route: 030
     Dates: start: 20031201, end: 20040101
  6. AVONEX [Suspect]
     Indication: MULTIPLE SCLEROSIS
     Dosage: 30 MCG QW IM
     Route: 030
     Dates: start: 20040101

REACTIONS (8)
  - BACK PAIN [None]
  - BRONCHITIS [None]
  - DIVERTICULITIS [None]
  - DYSPEPSIA [None]
  - INFLUENZA LIKE ILLNESS [None]
  - IRRITABILITY [None]
  - MIGRAINE [None]
  - PAIN [None]
